FAERS Safety Report 4586264-2 (Version None)
Quarter: 2005Q1

REPORT INFORMATION
  Report Type: 
  Country: None (occurrence: None)
  Receive Date: 20050125
  Receipt Date: 20041020
  Transmission Date: 20050727
  Serious: No
  Sender: FDA-Public Use
  Company Number: USA041081733

PATIENT
  Age: 78 Year
  Sex: Female

DRUGS (1)
  1. FORTEO [Suspect]
     Indication: OSTEOPOROSIS
     Dates: start: 20040927, end: 20041001

REACTIONS (6)
  - BLISTER [None]
  - BLOOD BLISTER [None]
  - CHEILITIS [None]
  - LIP BLISTER [None]
  - ORAL MUCOSAL BLISTERING [None]
  - STOMATITIS [None]
